FAERS Safety Report 16134368 (Version 1)
Quarter: 2019Q1

REPORT INFORMATION
  Report Type: Spontaneous
  Country: DE (occurrence: US)
  Receive Date: 20190329
  Receipt Date: 20190329
  Transmission Date: 20190418
  Serious: No
  Sender: FDA-Public Use
  Company Number: DE-BAYER-2019-057470

PATIENT
  Sex: Female

DRUGS (2)
  1. BETACONNECT [Suspect]
     Active Substance: DEVICE
     Dosage: UNK
     Dates: start: 20190319
  2. BETASERON [Suspect]
     Active Substance: INTERFERON BETA-1B
     Dosage: UNK
     Dates: start: 20190319

REACTIONS (2)
  - Product dose omission [Unknown]
  - Device malfunction [Unknown]

NARRATIVE: CASE EVENT DATE: 20190319
